FAERS Safety Report 24416110 (Version 1)
Quarter: 2024Q4

REPORT INFORMATION
  Report Type: Spontaneous
  Country: US (occurrence: None)
  Receive Date: 20241008
  Receipt Date: 20241008
  Transmission Date: 20250115
  Serious: Yes (Hospitalization)
  Sender: Public
  Company Number: None

PATIENT
  Age: 60 Year
  Sex: Male
  Weight: 111 kg

DRUGS (1)
  1. CHLORTHALIDONE [Suspect]
     Active Substance: CHLORTHALIDONE
     Indication: Hypertension
     Dosage: FREQUENCY : DAILY;?
     Route: 048
     Dates: end: 20240504

REACTIONS (5)
  - Hyponatraemia [None]
  - Therapy interrupted [None]
  - Non-24-hour sleep-wake disorder [None]
  - Alcohol abuse [None]
  - Hypophagia [None]

NARRATIVE: CASE EVENT DATE: 20240503
